FAERS Safety Report 9444689 (Version 1)
Quarter: 2013Q3

REPORT INFORMATION
  Report Type: Spontaneous
  Country: US (occurrence: None)
  Receive Date: 20130806
  Receipt Date: 20130806
  Transmission Date: 20140515
  Serious: No
  Sender: FDA-Public Use
  Company Number: None

PATIENT
  Age: 25 Year
  Sex: Male
  Weight: 70.31 kg

DRUGS (1)
  1. CONCERTA [Suspect]
     Indication: ATTENTION DEFICIT/HYPERACTIVITY DISORDER
     Dosage: 90 DAY REFILL
     Route: 048

REACTIONS (5)
  - Product substitution issue [None]
  - Product formulation issue [None]
  - Drug level increased [None]
  - Drug level decreased [None]
  - Product quality issue [None]
